FAERS Safety Report 18985204 (Version 1)
Quarter: 2021Q1

REPORT INFORMATION
  Report Type: Report from Study
  Country: US (occurrence: US)
  Receive Date: 20210309
  Receipt Date: 20210309
  Transmission Date: 20210420
  Serious: No
  Sender: FDA-Public Use
  Company Number: NVSC2021US046778

PATIENT
  Sex: Female

DRUGS (1)
  1. PIQRAY [Suspect]
     Active Substance: ALPELISIB
     Indication: BREAST CANCER METASTATIC
     Dosage: 300 MG, BID,ONCE2SDO
     Route: 048
     Dates: start: 20210222

REACTIONS (2)
  - Incorrect dose administered [Not Recovered/Not Resolved]
  - Platelet count decreased [Not Recovered/Not Resolved]
